FAERS Safety Report 10607823 (Version 1)
Quarter: 2014Q4

REPORT INFORMATION
  Report Type: Spontaneous
  Country: DE (occurrence: DE)
  Receive Date: 20141125
  Receipt Date: 20141125
  Transmission Date: 20150529
  Serious: Yes (Hospitalization, Congenital Anomaly, Other)
  Sender: FDA-Public Use
  Company Number: DE-TEVA-522496GER

PATIENT
  Sex: Male
  Weight: 3.31 kg

DRUGS (1)
  1. VENLAFAXINE [Suspect]
     Active Substance: VENLAFAXINE HYDROCHLORIDE
     Indication: DEPRESSION
     Route: 064

REACTIONS (6)
  - Seizure [Recovered/Resolved]
  - Feeling jittery [Recovered/Resolved]
  - Foetal exposure during pregnancy [Unknown]
  - Agitation [Recovered/Resolved]
  - Atrial septal defect [Unknown]
  - Hypertonia [Recovered/Resolved]
